FAERS Safety Report 4311671-2 (Version None)
Quarter: 2004Q1

REPORT INFORMATION
  Report Type: 
  Country: None (occurrence: None)
  Receive Date: 20040302
  Receipt Date: 20031119
  Transmission Date: 20041129
  Serious: No
  Sender: FDA-Public Use
  Company Number: 200328742BWH

PATIENT
  Age: 62 Year
  Sex: Male

DRUGS (3)
  1. LEVITRA [Suspect]
     Dosage: SEE IMAGE
  2. VIAGRA [Concomitant]
  3. PRINIVIL [Concomitant]

REACTIONS (1)
  - DRUG INEFFECTIVE [None]
